FAERS Safety Report 15034745 (Version 1)
Quarter: 2018Q2

REPORT INFORMATION
  Report Type: Other
  Country: US (occurrence: US)
  Receive Date: 20180620
  Receipt Date: 20180620
  Transmission Date: 20180711
  Serious: Yes (Other)
  Sender: FDA-Public Use
  Company Number: US-MERCK KGAA-2049670

PATIENT
  Age: 68 Year
  Sex: Female

DRUGS (4)
  1. NOVOTHYROX [Suspect]
     Active Substance: LEVOTHYROXINE SODIUM
     Indication: HYPOTHYROIDISM
     Route: 048
  2. HYDROCORTISONE. [Concomitant]
     Active Substance: HYDROCORTISONE
  3. TRIIODOTHYRONINE [Concomitant]
     Active Substance: LIOTHYRONINE SODIUM
     Route: 042
  4. THYROXINE [Concomitant]
     Active Substance: LEVOTHYROXINE
     Route: 042

REACTIONS (2)
  - Gastric disorder [Recovered/Resolved]
  - Myxoedema coma [Recovered/Resolved]
